FAERS Safety Report 25985694 (Version 1)
Quarter: 2025Q4

REPORT INFORMATION
  Report Type: Spontaneous
  Country: EU (occurrence: EU)
  Receive Date: 20251031
  Receipt Date: 20251031
  Transmission Date: 20260118
  Serious: Yes (Hospitalization)
  Sender: MERCK SHARP & DOHME LLC
  Company Number: None

PATIENT
  Age: 61 Year
  Sex: Female
  Weight: 67 kg

DRUGS (1)
  1. KEYTRUDA [Suspect]
     Active Substance: PEMBROLIZUMAB
     Indication: Lung cancer metastatic
     Dosage: 200 MG, Q3W
     Route: 042
     Dates: start: 20250717, end: 20250904

REACTIONS (3)
  - Autoimmune haemolytic anaemia [Recovering/Resolving]
  - Immune thrombocytopenia [Recovering/Resolving]
  - Antineutrophil cytoplasmic antibody positive [Recovering/Resolving]

NARRATIVE: CASE EVENT DATE: 20250923
